FAERS Safety Report 9638444 (Version 1)
Quarter: 2013Q4

REPORT INFORMATION
  Report Type: Spontaneous
  Country: US (occurrence: US)
  Receive Date: 20131022
  Receipt Date: 20131022
  Transmission Date: 20140711
  Serious: Yes (Hospitalization)
  Sender: FDA-Public Use
  Company Number: US-ASTELLAS-2013US010722

PATIENT
  Age: 54 Year
  Sex: Female
  Weight: 57 kg

DRUGS (8)
  1. PROGRAF [Suspect]
     Indication: RENAL AND PANCREAS TRANSPLANT
     Dosage: 5 OR 6 MG DEPENDING ON LABS
     Route: 048
     Dates: start: 20100411
  2. RAPAMUNE [Concomitant]
     Indication: PRODUCT USED FOR UNKNOWN INDICATION
     Dosage: 1 MG, UID/QD
     Route: 048
     Dates: start: 20100411
  3. TRIMETHOPRIM SULFAMETHOXAZOLE [Concomitant]
     Indication: PRODUCT USED FOR UNKNOWN INDICATION
     Dosage: 400/80 MG
     Route: 048
     Dates: start: 20100411
  4. ROPINIROLE [Concomitant]
     Indication: PRODUCT USED FOR UNKNOWN INDICATION
     Dosage: 2 MG, UID/QD
     Route: 048
  5. PREMARIN [Concomitant]
     Indication: PRODUCT USED FOR UNKNOWN INDICATION
     Dosage: 0.625 MG, UID/QD
     Route: 048
  6. DIPHENOXYLATE/ATROPINE [Concomitant]
     Indication: DIARRHOEA
     Dosage: 5 MG, Q6 HOURS
     Route: 048
  7. FUROSEMIDE [Concomitant]
     Indication: PRODUCT USED FOR UNKNOWN INDICATION
     Dosage: 20-40 MG DAILY AS NEEDED
     Route: 048
  8. BABY ASPIRIN [Concomitant]
     Indication: PRODUCT USED FOR UNKNOWN INDICATION
     Dosage: 81 MG, UID/QD
     Route: 048
     Dates: start: 20100411

REACTIONS (7)
  - Off label use [Unknown]
  - Head injury [Unknown]
  - Hydrocephalus [Unknown]
  - Influenza [Unknown]
  - Dehydration [Unknown]
  - Carpal tunnel syndrome [Unknown]
  - Fall [Unknown]
